FAERS Safety Report 13403874 (Version 5)
Quarter: 2017Q3

REPORT INFORMATION
  Report Type: Report from Study
  Country: TW (occurrence: TW)
  Receive Date: 20170405
  Receipt Date: 20170825
  Transmission Date: 20171127
  Serious: Yes (Hospitalization, Other)
  Sender: FDA-Public Use
  Company Number: TW-ACTELION-A-CH2016-141904

PATIENT
  Age: 50 Year
  Sex: Female

DRUGS (4)
  1. ORFARIN [Concomitant]
     Active Substance: WARFARIN SODIUM
     Indication: DEEP VEIN THROMBOSIS
     Dosage: 6.25 MG, UNK
     Route: 048
  2. TRACLEER [Suspect]
     Active Substance: BOSENTAN
     Indication: PULMONARY ARTERIAL HYPERTENSION
     Dosage: 125 MG, BID
     Route: 048
     Dates: start: 2008
  3. VENTAVIS [Concomitant]
     Active Substance: ILOPROST
     Indication: PULMONARY ARTERIAL HYPERTENSION
     Dosage: UNK
     Route: 055
     Dates: start: 201707
  4. REVATIO [Concomitant]
     Active Substance: SILDENAFIL CITRATE
     Indication: PULMONARY ARTERIAL HYPERTENSION
     Dosage: 20 MG, TID
     Route: 048

REACTIONS (17)
  - Dizziness [Recovered/Resolved]
  - Musculoskeletal stiffness [Recovered/Resolved]
  - Fatigue [Recovering/Resolving]
  - Inferior vena cava dilatation [Recovering/Resolving]
  - Cardiogenic shock [Recovered/Resolved]
  - Decreased appetite [Recovering/Resolving]
  - Hepatic vein dilatation [Recovering/Resolving]
  - Pain in extremity [Recovered/Resolved]
  - Discomfort [Recovering/Resolving]
  - Cardiac failure [Recovering/Resolving]
  - Abdominal pain upper [Recovering/Resolving]
  - Urinary tract infection [Recovering/Resolving]
  - Asthenia [Recovering/Resolving]
  - Cholecystitis [Recovering/Resolving]
  - Dyspnoea [Recovered/Resolved]
  - Oedema peripheral [Recovering/Resolving]
  - Pleural effusion [Recovering/Resolving]

NARRATIVE: CASE EVENT DATE: 20160901
